FAERS Safety Report 6863849-1 (Version None)
Quarter: 2010Q3

REPORT INFORMATION
  Report Type: 
  Country: None (occurrence: None)
  Receive Date: 20100721
  Receipt Date: 20080304
  Transmission Date: 20110219
  Serious: Yes (Other)
  Sender: FDA-Public Use
  Company Number: US-PFIZER INC-2008023652

PATIENT

DRUGS (1)
  1. CHANTIX [Suspect]

REACTIONS (1)
  - SUICIDAL IDEATION [None]
